FAERS Safety Report 8173831-2 (Version None)
Quarter: 2012Q1

REPORT INFORMATION
  Report Type: 
  Country: None (occurrence: None)
  Receive Date: 20120229
  Receipt Date: 20120216
  Transmission Date: 20120608
  Serious: Yes (Other)
  Sender: FDA-Public Use
  Company Number: GB-ELI_LILLY_AND_COMPANY-GB201202005228

PATIENT
  Age: 66 Year
  Sex: Male
  Weight: 69 kg

DRUGS (5)
  1. SIMVASTATIN [Concomitant]
     Dosage: UNK
     Dates: start: 20111012, end: 20111207
  2. METFORMIN HCL [Concomitant]
     Dosage: UNK
     Dates: start: 20111012, end: 20111109
  3. NALOXONE HCL [Suspect]
     Dosage: UNK, UNKNOWN
  4. TRIMETHOPRIM [Concomitant]
     Dosage: UNK
     Dates: start: 20110930
  5. NICOTINE [Concomitant]
     Dosage: UNK
     Dates: start: 20110930

REACTIONS (8)
  - MUSCLE TWITCHING [None]
  - ANHEDONIA [None]
  - DECREASED APPETITE [None]
  - PERSONALITY CHANGE [None]
  - PERSONALITY DISORDER [None]
  - VISION BLURRED [None]
  - DIZZINESS [None]
  - WITHDRAWAL SYNDROME [None]
